FAERS Safety Report 18834844 (Version 9)
Quarter: 2021Q3

REPORT INFORMATION
  Report Type: Other
  Country: GB (occurrence: GB)
  Receive Date: 20210203
  Receipt Date: 20210726
  Transmission Date: 20211014
  Serious: Yes (Death, Hospitalization, Other)
  Sender: FDA-Public Use
  Company Number: GB-MACLEODS PHARMA UK LTD-MAC2021029950

PATIENT

DRUGS (23)
  1. ALLOPURINOL. [Suspect]
     Active Substance: ALLOPURINOL
     Dosage: 300 MILLIGRAM, QD, 300 MG, 1X/DAY (FREQ:24 H;300 MILLIGRAM, 1X / DAY)
     Route: 065
  2. LAXIDO [Suspect]
     Active Substance: POLYETHYLENE GLYCOL 3350\POTASSIUM CHLORIDE\SODIUM BICARBONATE\SODIUM CHLORIDE
     Dosage: 1 DOSAGE FORM, BID
     Route: 065
  3. SENNA ALEXANDRIAN [Suspect]
     Active Substance: SENNA LEAF
     Dosage: 25 MICROGRAM
     Route: 065
  4. ENTACAPONE. [Suspect]
     Active Substance: ENTACAPONE
     Dosage: UNK
     Route: 065
  5. L?THYROXINE SODIUM [Suspect]
     Active Substance: LEVOTHYROXINE SODIUM
     Indication: PRODUCT USED FOR UNKNOWN INDICATION
     Dosage: 25 MICROGRAM, QD, 25 UG, FREQ:24 H;25 MICROGRAM, 1X / DAY
     Route: 065
  6. ADCAL?D3 [Suspect]
     Active Substance: CALCIUM CARBONATE\CHOLECALCIFEROL
     Indication: PRODUCT USED FOR UNKNOWN INDICATION
     Dosage: 1 DOSAGE FORM, BID, 1.5 G + 400 UNITS, 2X / DAY
     Route: 065
  7. COCODAMOL [Suspect]
     Active Substance: ACETAMINOPHEN\CODEINE PHOSPHATE
     Indication: PRODUCT USED FOR UNKNOWN INDICATION
     Dosage: 2 DOSAGE FORM, PRN, DF, 15MG/500MG, 2 TABLETS EVERY 6 HRS AS REQUIRED
     Route: 065
  8. COLECALCIFEROL [Suspect]
     Active Substance: CHOLECALCIFEROL
     Indication: PRODUCT USED FOR UNKNOWN INDICATION
     Dosage: 800 INTERNATIONAL UNIT, QD,(1X/DAY (FREQ:24 H, (1X/DAY (FREQ:24 H, 800 UNITS, 1X / DAY)
     Route: 065
  9. LAXIDO [Suspect]
     Active Substance: POLYETHYLENE GLYCOL 3350\POTASSIUM CHLORIDE\SODIUM BICARBONATE\SODIUM CHLORIDE
     Indication: PRODUCT USED FOR UNKNOWN INDICATION
     Dosage: 1 DOSAGE FORM, BID, 1 DF, FREQ:12 H; UNKNOWN, 2X / DAY
     Route: 065
  10. L?THYROXINE SODIUM [Suspect]
     Active Substance: LEVOTHYROXINE SODIUM
     Dosage: 50 MICROGRAM, QD,Q24H
     Route: 065
  11. L?THYROXINE SODIUM [Suspect]
     Active Substance: LEVOTHYROXINE SODIUM
     Dosage: 25 MICROGRAM, QD, 25 MICROGRAM, 1X/DAY){/
     Route: 065
  12. ALLOPURINOL. [Suspect]
     Active Substance: ALLOPURINOL
     Dosage: UNK
     Route: 065
  13. L?THYROXINE SODIUM [Suspect]
     Active Substance: LEVOTHYROXINE SODIUM
     Dosage: 50 MICROGRAM, 50 UG, FREQ:24 H;50 MICROGRAM, 1X / DAY
     Route: 065
  14. CO?CARELDOPA [Suspect]
     Active Substance: CARBIDOPA\LEVODOPA
     Indication: PRODUCT USED FOR UNKNOWN INDICATION
     Dosage: 1 DOSAGE FORM, 25/100 MG AND 12.5/50 MG, 4X / DAY (AT 8 AM, 12 PM,4 PM, 8 PM)
     Route: 065
  15. MIRTAZAPINE. [Suspect]
     Active Substance: MIRTAZAPINE
     Indication: PRODUCT USED FOR UNKNOWN INDICATION
     Dosage: 15 MILLIGRAM, QD, 15 MILLIGRAM, 1X / DAY
     Route: 065
  16. TAMSULOSIN 0.4 MG [Suspect]
     Active Substance: TAMSULOSIN
     Indication: PRODUCT USED FOR UNKNOWN INDICATION
     Dosage: 400 MICROGRAM, QD, 400 MICROGRAM, 1X / DAY
     Route: 065
  17. L?THYROXINE SODIUM [Suspect]
     Active Substance: LEVOTHYROXINE SODIUM
     Dosage: UNK UNK, QD
     Route: 065
  18. GABAPENTIN. [Suspect]
     Active Substance: GABAPENTIN
     Indication: PRODUCT USED FOR UNKNOWN INDICATION
     Dosage: 600 MILLIGRAM, TID, 600 MILLIGRAM, 3X / DAY
     Route: 065
  19. SENNA ALEXANDRIAN [Suspect]
     Active Substance: SENNA LEAF
     Indication: PRODUCT USED FOR UNKNOWN INDICATION
     Dosage: 7.5 MILLIGRAM, QD, 7.5 MILLIGRAM, 1X / DAY
     Route: 065
  20. ONGENTYS [Suspect]
     Active Substance: OPICAPONE
     Indication: PARKINSON^S DISEASE
     Dosage: 50 MILLIGRAM, QD, 50 MILLIGRAM, 1X / DAY (30 MINS PRE/POST EVENING LEVODOPA)
     Route: 065
     Dates: start: 2020
  21. ENTACAPONE. [Suspect]
     Active Substance: ENTACAPONE
     Indication: PRODUCT USED FOR UNKNOWN INDICATION
     Dosage: UNK
     Route: 065
  22. ALLOPURINOL. [Suspect]
     Active Substance: ALLOPURINOL
     Indication: PRODUCT USED FOR UNKNOWN INDICATION
     Dosage: 300 MILLIGRAM, QD, 300 MG, 1X/DAY (FREQ:24 H;300 MILLIGRAM, 1X / DAY)
     Route: 065
  23. ALLOPURINOL. [Suspect]
     Active Substance: ALLOPURINOL
     Dosage: UNK
     Route: 065

REACTIONS (13)
  - Death [Fatal]
  - Joint dislocation [Unknown]
  - Fall [Unknown]
  - Contraindicated product administered [Unknown]
  - Off label use [Unknown]
  - Dyskinesia [Unknown]
  - Hyponatraemia [Recovered/Resolved]
  - Confusional state [Recovered/Resolved]
  - Upper limb fracture [Unknown]
  - Agitation [Recovered/Resolved]
  - Orthostatic hypotension [Unknown]
  - Treatment noncompliance [Unknown]
  - Urinary retention [Recovered/Resolved]

NARRATIVE: CASE EVENT DATE: 2020
